FAERS Safety Report 10210557 (Version 2)
Quarter: 2014Q2

REPORT INFORMATION
  Report Type: Report from Study
  Country: US (occurrence: US)
  Receive Date: 20140602
  Receipt Date: 20140612
  Transmission Date: 20141212
  Serious: Yes (Hospitalization)
  Sender: FDA-Public Use
  Company Number: US-SA-2014SA066581

PATIENT
  Age: 64 Year
  Sex: Female

DRUGS (3)
  1. LANTUS [Suspect]
     Indication: DIABETES MELLITUS
     Dosage: DOSE:75 UNIT(S)
     Route: 065
  2. LANTUS [Suspect]
     Indication: DIABETES MELLITUS
     Dosage: DOSE:55 UNIT(S)
     Route: 065
  3. HUMALOG [Concomitant]
     Indication: BLOOD GLUCOSE INCREASED

REACTIONS (3)
  - Coronary artery bypass [Unknown]
  - Blood glucose increased [Recovered/Resolved]
  - Off label use [Unknown]
